FAERS Safety Report 21764420 (Version 1)
Quarter: 2022Q4

REPORT INFORMATION
  Report Type: Spontaneous
  Country: LB (occurrence: None)
  Receive Date: 20221222
  Receipt Date: 20221222
  Transmission Date: 20230113
  Serious: Yes (Other)
  Sender: FDA-Public Use
  Company Number: LB-ROCHE-3245964

PATIENT
  Age: 62 Year
  Sex: Female

DRUGS (2)
  1. RITUXIMAB [Suspect]
     Active Substance: RITUXIMAB
     Indication: Diffuse large B-cell lymphoma
     Route: 065
  2. REVLIMID [Suspect]
     Active Substance: LENALIDOMIDE
     Indication: Diffuse large B-cell lymphoma
     Dosage: 3 WEEKS ON/ 1 WEEK OFF
     Route: 065

REACTIONS (4)
  - Inflammation [Unknown]
  - Lymphadenopathy [Unknown]
  - Positron emission tomogram abnormal [Unknown]
  - Disease progression [Unknown]
